FAERS Safety Report 24022124 (Version 2)
Quarter: 2024Q2

REPORT INFORMATION
  Report Type: Spontaneous
  Country: US (occurrence: US)
  Receive Date: 20240627
  Receipt Date: 20240627
  Transmission Date: 20240716
  Serious: No
  Sender: FDA-Public Use
  Company Number: US-ROCHE-3522578

PATIENT
  Age: 60 Year
  Sex: Male

DRUGS (3)
  1. VABYSMO [Suspect]
     Active Substance: FARICIMAB\FARICIMAB-SVOA
     Indication: Diabetic retinopathy
     Dosage: 28/NOV/2023, RECEIVED THE MOST RECENT DOSE OF FARICIMAB? FREQUENCY TEXT:4-8 WEEKS
     Route: 065
  2. VABYSMO [Suspect]
     Active Substance: FARICIMAB\FARICIMAB-SVOA
     Indication: Diabetic retinopathy
  3. VABYSMO [Suspect]
     Active Substance: FARICIMAB\FARICIMAB-SVOA
     Indication: Diabetic retinal oedema

REACTIONS (4)
  - Eye inflammation [Recovered/Resolved]
  - Anterior chamber inflammation [Recovered/Resolved]
  - Corneal oedema [Unknown]
  - Visual acuity reduced [Unknown]
